FAERS Safety Report 23724484 (Version 1)
Quarter: 2024Q2

REPORT INFORMATION
  Report Type: Spontaneous
  Country: US (occurrence: US)
  Receive Date: 20240409
  Receipt Date: 20240409
  Transmission Date: 20240716
  Serious: No
  Sender: FDA-Public Use
  Company Number: US-FOUNDATIONCONSUMERHC-2023-US-027342

PATIENT
  Age: 19 Year
  Sex: Female
  Weight: 80.29 kg

DRUGS (1)
  1. PLAN B ONE-STEP [Suspect]
     Active Substance: LEVONORGESTREL
     Indication: Contraception
     Dosage: 6 DOSES TAKEN ON APPROXIMATELY 27-JUL, 17-AUG, 23-AUG, 26-AUG, AND 28-AUG-2023
     Route: 048
     Dates: start: 20230727, end: 20230828

REACTIONS (4)
  - Dysmenorrhoea [Not Recovered/Not Resolved]
  - Menstruation delayed [Not Recovered/Not Resolved]
  - Intentional product misuse [Recovered/Resolved]
  - Product use in unapproved indication [Recovered/Resolved]

NARRATIVE: CASE EVENT DATE: 20230727
